FAERS Safety Report 5475647-4 (Version None)
Quarter: 2007Q4

REPORT INFORMATION
  Report Type: 
  Country: None (occurrence: None)
  Receive Date: 20071003
  Receipt Date: 20070927
  Transmission Date: 20080405
  Serious: Yes (Hospitalization, Other)
  Sender: FDA-Public Use
  Company Number: AU-AVENTIS-200718439GDDC

PATIENT
  Age: 59 Year
  Sex: Female

DRUGS (1)
  1. ARAVA [Suspect]
     Dates: start: 20070508

REACTIONS (2)
  - POOR PERIPHERAL CIRCULATION [None]
  - SKIN DISCOLOURATION [None]
